FAERS Safety Report 7265561-6 (Version None)
Quarter: 2011Q1

REPORT INFORMATION
  Report Type: 
  Country: None (occurrence: None)
  Receive Date: 20110131
  Receipt Date: 20110128
  Transmission Date: 20110831
  Serious: Yes (Hospitalization)
  Sender: FDA-Public Use
  Company Number: CO-ROCHE-756013

PATIENT
  Sex: Male

DRUGS (3)
  1. TRAMADOL HCL [Concomitant]
     Indication: PAIN
     Dosage: DOSE: DROPS, FREQUENCY: PRN
     Route: 048
  2. ACETAMINOPHEN [Concomitant]
     Indication: PAIN
     Route: 048
  3. XELODA [Suspect]
     Indication: GASTRIC CANCER
     Route: 048
     Dates: start: 20100215, end: 20110101

REACTIONS (1)
  - OESOPHAGEAL OBSTRUCTION [None]
